FAERS Safety Report 5787633-5 (Version None)
Quarter: 2008Q2

REPORT INFORMATION
  Report Type: 
  Country: None (occurrence: None)
  Receive Date: 20080625
  Receipt Date: 20071101
  Transmission Date: 20081010
  Serious: No
  Sender: FDA-Public Use
  Company Number: US-ASTRAZENECA-2007UW25366

PATIENT
  Age: 77 Year
  Sex: Female
  Weight: 81.6 kg

DRUGS (6)
  1. PULMICORT FLEXHALER [Suspect]
     Indication: EMPHYSEMA
     Dosage: ONE PUFF DAILY
     Route: 055
  2. LEVOTHYROXINE SODIUM [Concomitant]
  3. PREMARIN [Concomitant]
  4. PREVACID [Concomitant]
  5. VITAMINS [Concomitant]
  6. PLAVIX [Concomitant]

REACTIONS (2)
  - AMNESIA [None]
  - INNER EAR DISORDER [None]
